FAERS Safety Report 24820042 (Version 1)
Quarter: 2025Q1

REPORT INFORMATION
  Report Type: Report from Study
  Country: US (occurrence: US)
  Receive Date: 20250108
  Receipt Date: 20250108
  Transmission Date: 20250409
  Serious: Yes (Death, Life-Threatening)
  Sender: ABBVIE
  Company Number: US-ABBVIE-6076106

PATIENT
  Age: 67 Year
  Sex: Male

DRUGS (1)
  1. SKYRIZI [Suspect]
     Active Substance: RISANKIZUMAB-RZAA
     Indication: Product used for unknown indication
     Route: 058
     Dates: start: 20241210

REACTIONS (1)
  - Fungal skin infection [Fatal]

NARRATIVE: CASE EVENT DATE: 20241210
